FAERS Safety Report 8073299-0 (Version None)
Quarter: 2012Q1

REPORT INFORMATION
  Report Type: 
  Country: None (occurrence: None)
  Receive Date: 20120123
  Receipt Date: 20120123
  Transmission Date: 20120608
  Serious: Yes (Hospitalization)
  Sender: FDA-Public Use
  Company Number: None

PATIENT
  Sex: Male
  Weight: 60.9 kg

DRUGS (3)
  1. BEVACIZUMAB (RHUMAB VEGF) [Suspect]
     Dosage: 914 MG
     Dates: end: 20120118
  2. TAXOL [Suspect]
     Dosage: 340 MG
     Dates: end: 20120118
  3. CARBOPLATIN [Suspect]
     Dosage: 570 MG
     Dates: end: 20120118

REACTIONS (3)
  - SUPRAVENTRICULAR TACHYCARDIA [None]
  - NAUSEA [None]
  - PNEUMONIA [None]
